FAERS Safety Report 5102653-1 (Version None)
Quarter: 2006Q3

REPORT INFORMATION
  Report Type: 
  Country: None (occurrence: None)
  Receive Date: 20060907
  Receipt Date: 20060828
  Transmission Date: 20061208
  Serious: Yes (Hospitalization)
  Sender: FDA-Public Use
  Company Number: 2006097819

PATIENT
  Age: 37 Year
  Sex: Female

DRUGS (2)
  1. SOLU-MEDROL [Suspect]
     Indication: DRUG USE FOR UNKNOWN INDICATION
     Dosage: (1 GRAM,) INTRAVENOUS
     Route: 042
     Dates: start: 20060602
  2. MITOXANTRONE [Suspect]
     Indication: DRUG USE FOR UNKNOWN INDICATION
     Dosage: 20 MG, INTRAVENOUS
     Route: 042
     Dates: start: 20060602, end: 20060602

REACTIONS (3)
  - CHILLS [None]
  - DERMATITIS EXFOLIATIVE [None]
  - FACE OEDEMA [None]
